FAERS Safety Report 12820189 (Version 2)
Quarter: 2016Q4

REPORT INFORMATION
  Report Type: Report from Study
  Country: US (occurrence: US)
  Receive Date: 20161006
  Receipt Date: 20161014
  Transmission Date: 20170207
  Serious: Yes (Other)
  Sender: FDA-Public Use
  Company Number: US-BAYER-2016-193340

PATIENT
  Age: 64 Year
  Sex: Female

DRUGS (6)
  1. SMZ-TMP [Concomitant]
     Active Substance: SULFAMETHOXAZOLE\TRIMETHOPRIM
  2. NAPROXEN. [Concomitant]
     Active Substance: NAPROXEN
  3. FLUCONAZON [Concomitant]
  4. ALBUTEROL. [Concomitant]
     Active Substance: ALBUTEROL
  5. STIVARGA [Suspect]
     Active Substance: REGORAFENIB
     Indication: COLORECTAL CANCER
     Dosage: DAILY 160 MG (WITH LOW FAT BREAKFAST FOR 3 WEEKS IN A ROW THEN STOP FOR 1 WEEK)
     Route: 048
     Dates: start: 201609, end: 2016
  6. HYDROCHLOROTHIAZIDE. [Concomitant]
     Active Substance: HYDROCHLOROTHIAZIDE

REACTIONS (4)
  - Blood pressure increased [Unknown]
  - Palmar-plantar erythrodysaesthesia syndrome [Unknown]
  - Limb discomfort [Unknown]
  - Pain in extremity [Unknown]

NARRATIVE: CASE EVENT DATE: 2016
